FAERS Safety Report 8194626-X (Version None)
Quarter: 2012Q1

REPORT INFORMATION
  Report Type: 
  Country: None (occurrence: None)
  Receive Date: 20120308
  Receipt Date: 20111024
  Transmission Date: 20120608
  Serious: No
  Sender: FDA-Public Use
  Company Number: US-GLAXOSMITHKLINE-A0950219A

PATIENT
  Age: 46 Year
  Sex: Male

DRUGS (4)
  1. NICORETTE [Suspect]
     Indication: EX-TOBACCO USER
  2. NICORETTE [Suspect]
     Indication: EX-TOBACCO USER
  3. NICOTINE POLACRILEX [Suspect]
     Indication: EX-TOBACCO USER
  4. NICORETTE (MINT) [Suspect]
     Indication: EX-TOBACCO USER

REACTIONS (7)
  - OROPHARYNGEAL PAIN [None]
  - ORAL PAIN [None]
  - FACIAL PAIN [None]
  - MOUTH ULCERATION [None]
  - GLOSSODYNIA [None]
  - DRUG ADMINISTRATION ERROR [None]
  - APHTHOUS STOMATITIS [None]
